FAERS Safety Report 8115815-6 (Version None)
Quarter: 2012Q1

REPORT INFORMATION
  Report Type: 
  Country: None (occurrence: None)
  Receive Date: 20120206
  Receipt Date: 20120118
  Transmission Date: 20120608
  Serious: Yes (Other)
  Sender: FDA-Public Use
  Company Number: CN-ROCHE-1020830

PATIENT

DRUGS (4)
  1. ALTEPLASE [Suspect]
     Indication: ACUTE MYOCARDIAL INFARCTION
     Route: 040
  2. CLOPIDOGREL [Concomitant]
     Indication: ACUTE MYOCARDIAL INFARCTION
  3. HEPARIN SODIUM [Concomitant]
     Indication: ACUTE MYOCARDIAL INFARCTION
  4. ASPIRIN [Concomitant]
     Indication: ACUTE MYOCARDIAL INFARCTION

REACTIONS (1)
  - MYOCARDIAL INFARCTION [None]
